FAERS Safety Report 4729793-0 (Version None)
Quarter: 2005Q3

REPORT INFORMATION
  Report Type: 
  Country: None (occurrence: None)
  Receive Date: 20050801
  Receipt Date: 20050419
  Transmission Date: 20060218
  Serious: Yes (Hospitalization)
  Sender: FDA-Public Use
  Company Number: US-MERCK-0504USA03762

PATIENT
  Age: 70 Year
  Sex: Female
  Weight: 91 kg

DRUGS (8)
  1. VIOXX [Suspect]
     Indication: OSTEOARTHRITIS
     Route: 048
     Dates: start: 20030310, end: 20030401
  2. VIOXX [Suspect]
     Route: 048
     Dates: start: 20000905
  3. FUROSEMIDE [Concomitant]
     Indication: HYPERTENSION
     Route: 048
     Dates: start: 20030324
  4. FUROSEMIDE [Concomitant]
     Route: 048
     Dates: end: 20030323
  5. ENTEX PSE [Concomitant]
     Route: 048
  6. HUMIBID L.A. [Concomitant]
     Route: 048
  7. DAYPRO [Concomitant]
     Route: 048
  8. SYNTHROID [Concomitant]
     Indication: HYPOTHYROIDISM
     Route: 048

REACTIONS (18)
  - ASTHMA [None]
  - BLOOD CHOLESTEROL INCREASED [None]
  - BREAST ABSCESS [None]
  - CEREBRAL ISCHAEMIA [None]
  - COLONIC POLYP [None]
  - GASTROOESOPHAGEAL REFLUX DISEASE [None]
  - HIATUS HERNIA [None]
  - HYPERTENSION [None]
  - IRRITABLE BOWEL SYNDROME [None]
  - LACUNAR INFARCTION [None]
  - MENIERE'S DISEASE [None]
  - MITRAL VALVE INCOMPETENCE [None]
  - MITRAL VALVE PROLAPSE [None]
  - OEDEMA PERIPHERAL [None]
  - OSTEOARTHRITIS [None]
  - RAYNAUD'S PHENOMENON [None]
  - SEASONAL ALLERGY [None]
  - SINUS DISORDER [None]
